FAERS Safety Report 10540587 (Version 4)
Quarter: 2014Q4

REPORT INFORMATION
  Report Type: Spontaneous
  Country: BR (occurrence: BR)
  Receive Date: 20141024
  Receipt Date: 20141224
  Transmission Date: 20150529
  Serious: Yes (Hospitalization, Other)
  Sender: FDA-Public Use
  Company Number: BR-PFIZER INC-2014290213

PATIENT
  Age: 57 Year
  Sex: Female
  Weight: 60 kg

DRUGS (10)
  1. BROMAZEPAM [Concomitant]
     Active Substance: BROMAZEPAM
     Dosage: 3 MG STRENGTH, UNK DOSE
  2. METFORMIN [Concomitant]
     Active Substance: METFORMIN HYDROCHLORIDE
     Dosage: UNK
     Dates: end: 2014
  3. ^PLAQ^ [Concomitant]
     Indication: ANTICOAGULANT THERAPY
     Dosage: 75 MG, DAILY
     Dates: start: 2009
  4. NEBILET [Concomitant]
     Active Substance: NEBIVOLOL
     Indication: BLOOD PRESSURE ABNORMAL
     Dosage: 5 MG STRENGTH, UNK DOSE
     Dates: start: 2009
  5. FLUOXETINE [Concomitant]
     Active Substance: FLUOXETINE\FLUOXETINE HYDROCHLORIDE
     Dosage: UNK
  6. PANTOZOL [Concomitant]
     Active Substance: PANTOPRAZOLE SODIUM
     Indication: ABDOMINAL DISCOMFORT
     Dosage: 40 MG, UNK
     Dates: start: 2008
  7. LIPITOR [Suspect]
     Active Substance: ATORVASTATIN CALCIUM
     Indication: BLOOD CHOLESTEROL INCREASED
     Dosage: 10 MG, 1X/DAY
     Route: 048
     Dates: start: 1998
  8. LIPITOR [Suspect]
     Active Substance: ATORVASTATIN CALCIUM
     Indication: PROPHYLAXIS
  9. ZANIDIP [Concomitant]
     Active Substance: LERCANIDIPINE HYDROCHLORIDE
     Dosage: 10 MG, UNK
     Dates: start: 2009
  10. GLIFAGE XR [Concomitant]
     Active Substance: METFORMIN HYDROCHLORIDE
     Indication: DIABETES MELLITUS
     Dosage: 1000 MG, 1X/DAY (AFTER DINNER)
     Dates: start: 2004

REACTIONS (8)
  - Blood creatinine abnormal [Unknown]
  - Drug ineffective [Recovering/Resolving]
  - Blood glucose increased [Unknown]
  - Depression [Recovering/Resolving]
  - Headache [Recovered/Resolved]
  - Hypertension [Unknown]
  - Myocardial infarction [Recovering/Resolving]
  - Skin discolouration [Recovering/Resolving]

NARRATIVE: CASE EVENT DATE: 1998
